FAERS Safety Report 24111162 (Version 3)
Quarter: 2024Q3

REPORT INFORMATION
  Report Type: Spontaneous
  Country: US (occurrence: US)
  Receive Date: 20240718
  Receipt Date: 20240820
  Transmission Date: 20241017
  Serious: Yes (Death, Hospitalization)
  Sender: PARI RESPIRATORY EQUIPMENT
  Company Number: US-PARI RESPIRATORY EQUIPMENT, INC.-2024PAR00052

PATIENT
  Sex: Male
  Weight: 45.351 kg

DRUGS (3)
  1. KITABIS PAK [Suspect]
     Active Substance: TOBRAMYCIN
     Indication: Cystic fibrosis
     Dosage: 5ML (300 MG), 2X/DAY, VIA NEBULIZER, EVERY OTHER MONTH (ODD MONTHS ON AND EVEN MONTHS OFF).
     Dates: start: 20190614
  2. CLONIDINE [Concomitant]
     Active Substance: CLONIDINE
     Dosage: UNK
     Dates: end: 2024
  3. CITRIC ACID, POTASSIUM CITRATE [Concomitant]
     Dosage: UNK, 3X/DAY
     Dates: end: 20240707

REACTIONS (5)
  - Pneumonia pseudomonal [Fatal]
  - Septic shock [Fatal]
  - Acute kidney injury [Fatal]
  - Urinary tract infection [Unknown]
  - Bacterial infection [None]

NARRATIVE: CASE EVENT DATE: 20240101
